FAERS Safety Report 20345468 (Version 1)
Quarter: 2022Q1

REPORT INFORMATION
  Report Type: Spontaneous
  Country: CA (occurrence: CA)
  Receive Date: 20220118
  Receipt Date: 20220118
  Transmission Date: 20220424
  Serious: Yes (Other)
  Sender: FDA-Public Use
  Company Number: CA-JNJFOC-20220122917

PATIENT
  Age: 24 Year
  Sex: Male
  Weight: 99 kg

DRUGS (2)
  1. REMICADE [Suspect]
     Active Substance: INFLIXIMAB
     Indication: Colitis ulcerative
     Route: 042
  2. MESALAMINE [Concomitant]
     Active Substance: MESALAMINE

REACTIONS (14)
  - Conjunctival hyperaemia [Unknown]
  - Weight fluctuation [Unknown]
  - Musculoskeletal discomfort [Unknown]
  - Malaise [Unknown]
  - Paraesthesia [Unknown]
  - Respiratory disorder [Unknown]
  - Chest discomfort [Unknown]
  - Erythema [Unknown]
  - Blood pressure fluctuation [Unknown]
  - Heart rate decreased [Unknown]
  - Off label use [Unknown]
  - Inappropriate schedule of product administration [Unknown]
  - Intentional product use issue [Unknown]
  - Product administration interrupted [Unknown]
